FAERS Safety Report 14214164 (Version 2)
Quarter: 2017Q4

REPORT INFORMATION
  Report Type: Report from Study
  Country: BR (occurrence: BR)
  Receive Date: 20171122
  Receipt Date: 20171206
  Transmission Date: 20180321
  Serious: Yes (Other)
  Sender: FDA-Public Use
  Company Number: PHHY2017BR170939

PATIENT
  Sex: Male
  Weight: 82 kg

DRUGS (1)
  1. TRAVATAN [Suspect]
     Active Substance: TRAVOPROST
     Indication: GLAUCOMA
     Dosage: 1 GTT, QD, RIGHT EYE
     Route: 031
     Dates: start: 201703, end: 2017

REACTIONS (7)
  - Glaucoma [Recovering/Resolving]
  - Photophobia [Recovering/Resolving]
  - Visual impairment [Unknown]
  - Anxiety [Unknown]
  - Hypoacusis [Unknown]
  - Drug ineffective [Unknown]
  - Vision blurred [Not Recovered/Not Resolved]
